FAERS Safety Report 9728503 (Version 1)
Quarter: 2013Q4

REPORT INFORMATION
  Report Type: Spontaneous
  Country: GB (occurrence: None)
  Receive Date: 20131202
  Receipt Date: 20131202
  Transmission Date: 20140711
  Serious: Yes (Life-Threatening, Hospitalization)
  Sender: FDA-Public Use
  Company Number: 2035711

PATIENT
  Age: 71 Year
  Sex: Male

DRUGS (1)
  1. (VINCRISTINE SULFATE) [Suspect]
     Dosage: UNKNOWN, UNKNOWN , UNKNOWN

REACTIONS (1)
  - Neutropenic sepsis [None]
